FAERS Safety Report 15923070 (Version 1)
Quarter: 2019Q1

REPORT INFORMATION
  Report Type: Spontaneous
  Country: US (occurrence: US)
  Receive Date: 20190205
  Receipt Date: 20190205
  Transmission Date: 20190417
  Serious: Yes (Hospitalization, Other)
  Sender: FDA-Public Use
  Company Number: PHHY2019US017740

PATIENT
  Sex: Female
  Weight: .53 kg

DRUGS (16)
  1. VANCOMYCIN [Suspect]
     Active Substance: VANCOMYCIN
     Indication: NECROTISING ENTEROCOLITIS NEONATAL
  2. BETAMETHASONE. [Suspect]
     Active Substance: BETAMETHASONE
     Indication: FOETAL EXPOSURE DURING PREGNANCY
     Route: 064
  3. OXACILLIN [Suspect]
     Active Substance: OXACILLIN SODIUM
     Indication: NECROTISING ENTEROCOLITIS NEONATAL
  4. VANCOMYCIN [Suspect]
     Active Substance: VANCOMYCIN
     Indication: SEPSIS NEONATAL
     Dosage: 15 MG/KG, BID
     Route: 065
  5. CEFEPIME [Suspect]
     Active Substance: CEFEPIME HYDROCHLORIDE
     Indication: NECROTISING ENTEROCOLITIS NEONATAL
  6. CEFEPIME [Suspect]
     Active Substance: CEFEPIME HYDROCHLORIDE
     Indication: SEPSIS NEONATAL
     Route: 065
  7. AMPICILLIN [Suspect]
     Active Substance: AMPICILLIN
     Indication: NECROTISING ENTEROCOLITIS NEONATAL
  8. GENTAMICIN. [Suspect]
     Active Substance: GENTAMICIN
     Indication: NECROTISING ENTEROCOLITIS NEONATAL
  9. METRONIDAZOLE. [Suspect]
     Active Substance: METRONIDAZOLE
     Indication: NECROTISING ENTEROCOLITIS NEONATAL
  10. FLUCONAZOLE. [Suspect]
     Active Substance: FLUCONAZOLE
     Indication: SEPSIS NEONATAL
     Route: 065
  11. MAGNESIUM SULFATE. [Suspect]
     Active Substance: MAGNESIUM SULFATE
     Indication: FOETAL EXPOSURE DURING PREGNANCY
     Route: 064
  12. GENTAMICIN. [Suspect]
     Active Substance: GENTAMICIN
     Indication: SEPSIS NEONATAL
     Route: 065
  13. OXACILLIN [Suspect]
     Active Substance: OXACILLIN SODIUM
     Indication: SEPSIS NEONATAL
     Route: 065
  14. METRONIDAZOLE. [Suspect]
     Active Substance: METRONIDAZOLE
     Indication: SEPSIS NEONATAL
     Route: 065
  15. FLUCONAZOLE. [Suspect]
     Active Substance: FLUCONAZOLE
     Indication: NECROTISING ENTEROCOLITIS NEONATAL
  16. AMPICILLIN [Suspect]
     Active Substance: AMPICILLIN
     Indication: SEPSIS NEONATAL
     Route: 065

REACTIONS (12)
  - Hypotension [Recovering/Resolving]
  - Staphylococcal infection [Recovering/Resolving]
  - Premature baby [Unknown]
  - Low birth weight baby [Unknown]
  - Hyponatraemia [Recovering/Resolving]
  - Pneumonia staphylococcal [Recovering/Resolving]
  - Lactic acidosis [Recovering/Resolving]
  - Urine output decreased [Recovering/Resolving]
  - Foetal heart rate deceleration abnormality [Unknown]
  - Foetal exposure during pregnancy [Unknown]
  - Acute kidney injury [Recovering/Resolving]
  - Thrombocytopenia [Recovering/Resolving]
